FAERS Safety Report 8677805 (Version 2)
Quarter: 2014Q2

REPORT INFORMATION
  Report Type: Report from Study
  Country: ES (occurrence: ES)
  Receive Date: 20120723
  Receipt Date: 20140416
  Transmission Date: 20141212
  Serious: Yes (Hospitalization)
  Sender: FDA-Public Use
  Company Number: ES-ROCHE-1049468

PATIENT
  Age: 54 Year
  Sex: Female

DRUGS (2)
  1. TRASTUZUMAB EMTANSINE [Suspect]
     Indication: BREAST CANCER
     Dosage: DATE OS LAST DOSE PRIOR TO SAE, 01/MAR/2012
     Route: 042
     Dates: start: 20110701
  2. PERTUZUMAB [Suspect]
     Indication: BREAST CANCER
     Dosage: DATE OS LAST DOSE PRIOR TO SAE, 01/MAR/2012
     Route: 042
     Dates: start: 20110701

REACTIONS (2)
  - Cognitive disorder [Recovered/Resolved]
  - Encephalopathy [Recovered/Resolved]
